FAERS Safety Report 11720178 (Version 1)
Quarter: 2015Q4

REPORT INFORMATION
  Report Type: Spontaneous
  Country: US (occurrence: US)
  Receive Date: 20151110
  Receipt Date: 20151110
  Transmission Date: 20160304
  Serious: No
  Sender: FDA-Public Use
  Company Number: US-PERRIGO-15US006789

PATIENT
  Sex: Male
  Weight: 56.69 kg

DRUGS (2)
  1. CICLOPIROX RX 8% 3C0 [Suspect]
     Active Substance: CICLOPIROX
     Indication: ONYCHOMYCOSIS
     Dosage: THIN LAYER, QHS
     Route: 061
     Dates: start: 2009, end: 2014
  2. CICLOPIROX RX 8% 3C0 [Suspect]
     Active Substance: CICLOPIROX
     Indication: ANTIFUNGAL PROPHYLAXIS
     Dosage: THIN LAYER, QHS
     Route: 061
     Dates: start: 2014

REACTIONS (2)
  - Wrong technique in product usage process [Unknown]
  - No adverse event [Unknown]

NARRATIVE: CASE EVENT DATE: 2009
